FAERS Safety Report 25933989 (Version 1)
Quarter: 2025Q4

REPORT INFORMATION
  Report Type: Spontaneous
  Country: US (occurrence: None)
  Receive Date: 20251016
  Receipt Date: 20251016
  Transmission Date: 20260117
  Serious: Yes (Death)
  Sender: FDA-CTU
  Company Number: None

PATIENT
  Age: 64 Year
  Sex: Female
  Weight: 89.9 kg

DRUGS (1)
  1. SIMPONI [Suspect]
     Active Substance: GOLIMUMAB
     Indication: Rheumatoid arthritis
     Dosage: OTHER QUANTITY : 50/0.5 MG/ML;?OTHER FREQUENCY : EVERY 28 DAYS;?
     Route: 058
     Dates: start: 20220405, end: 20250923

REACTIONS (3)
  - Cardiac disorder [None]
  - Disease complication [None]
  - Septic shock [None]

NARRATIVE: CASE EVENT DATE: 20250922
